FAERS Safety Report 19908350 (Version 1)
Quarter: 2021Q4

REPORT INFORMATION
  Report Type: Spontaneous
  Country: US (occurrence: US)
  Receive Date: 20211002
  Receipt Date: 20211002
  Transmission Date: 20220303
  Serious: No
  Sender: FDA-Public Use
  Company Number: US-GLENMARK PHARMACEUTICALS-2021GMK054607

PATIENT

DRUGS (1)
  1. ESTRADIOL [Suspect]
     Active Substance: ESTRADIOL
     Indication: Incontinence
     Dosage: 1 DOSAGE FORM, SINGLE
     Route: 067
     Dates: start: 20210615, end: 20210615

REACTIONS (2)
  - Hot flush [Unknown]
  - Sluggishness [Unknown]

NARRATIVE: CASE EVENT DATE: 20210616
